FAERS Safety Report 21460649 (Version 1)
Quarter: 2022Q4

REPORT INFORMATION
  Report Type: Spontaneous
  Country: NL (occurrence: NL)
  Receive Date: 20221015
  Receipt Date: 20221015
  Transmission Date: 20230113
  Serious: Yes (Hospitalization, Other)
  Sender: FDA-Public Use
  Company Number: NL-LRB-00832879

PATIENT
  Sex: Male
  Weight: 150 kg

DRUGS (1)
  1. FUROSEMIDE [Suspect]
     Active Substance: FUROSEMIDE
     Indication: Product used for unknown indication
     Dosage: 40 MILLIGRAM, TWO TIMES A DAY (FIRST 3 DAYS 2 PIECES THEN 2 A DAY)
     Route: 065
     Dates: start: 20220926

REACTIONS (1)
  - Urinary retention [Not Recovered/Not Resolved]
